FAERS Safety Report 7632945-3 (Version None)
Quarter: 2011Q3

REPORT INFORMATION
  Report Type: 
  Country: None (occurrence: None)
  Receive Date: 20110725
  Receipt Date: 20110722
  Transmission Date: 20111222
  Serious: No
  Sender: FDA-Public Use
  Company Number: US-BAYER-2011-064023

PATIENT
  Sex: Female

DRUGS (2)
  1. YAZ [Suspect]
     Dosage: UNK
     Route: 048
     Dates: end: 20110201
  2. YASMIN [Suspect]
     Dosage: UNK
     Route: 048
     Dates: end: 20110201

REACTIONS (2)
  - WEIGHT INCREASED [None]
  - ABDOMINAL DISTENSION [None]
